FAERS Safety Report 10014532 (Version 1)
Quarter: 2014Q1

REPORT INFORMATION
  Report Type: Spontaneous
  Country: PT (occurrence: PT)
  Receive Date: 20140317
  Receipt Date: 20140317
  Transmission Date: 20141002
  Serious: Yes (Death, Hospitalization, Other)
  Sender: FDA-Public Use
  Company Number: PT-ASTELLAS-2014US002545

PATIENT
  Age: 46 Year
  Sex: Female

DRUGS (1)
  1. TARCEVA [Suspect]
     Indication: LUNG ADENOCARCINOMA
     Dosage: 150 MG, UID/QD
     Route: 048

REACTIONS (5)
  - Death [Fatal]
  - Convulsion [Unknown]
  - Therapeutic response decreased [Unknown]
  - Metastases to bone [Unknown]
  - Metastases to central nervous system [Unknown]
